FAERS Safety Report 7707522-6 (Version None)
Quarter: 2011Q3

REPORT INFORMATION
  Report Type: 
  Country: None (occurrence: None)
  Receive Date: 20110824
  Receipt Date: 20110822
  Transmission Date: 20111222
  Serious: Yes (Other)
  Sender: FDA-Public Use
  Company Number: US-PFIZER INC-2011194966

PATIENT
  Sex: Female
  Weight: 49.887 kg

DRUGS (3)
  1. ZOLOFT [Suspect]
     Indication: DEPRESSION
     Dosage: 200 MG, DAILY
  2. TYLENOL-500 [Concomitant]
     Dosage: UNK
  3. PRENATAL VITAMINS [Concomitant]
     Dosage: UNK

REACTIONS (1)
  - STILLBIRTH [None]
